FAERS Safety Report 6973427-1 (Version None)
Quarter: 2010Q3

REPORT INFORMATION
  Report Type: 
  Country: None (occurrence: None)
  Receive Date: 20100909
  Receipt Date: 20100831
  Transmission Date: 20110219
  Serious: Yes (Other)
  Sender: FDA-Public Use
  Company Number: US-PFIZER INC-2010100051

PATIENT
  Sex: Female
  Weight: 79.365 kg

DRUGS (11)
  1. TOVIAZ [Suspect]
     Indication: HYPERTONIC BLADDER
     Dosage: 8 MG, 1X/DAY
     Route: 048
     Dates: start: 20100731
  2. POTASSIUM [Concomitant]
     Dosage: UNK
  3. DIGITALIS [Concomitant]
     Dosage: UNK
  4. LEVONORGESTREL + ETHINYL ESTRADIOL [Concomitant]
     Dosage: UNK
  5. FENOFIBRATE [Concomitant]
     Indication: CARDIAC DISORDER
     Dosage: UNK
  6. METOPROLOL [Concomitant]
     Dosage: UNK, 2X/DAY
  7. ASPIRIN [Concomitant]
     Dosage: UNK, 2X/DAY
  8. MULTI-VITAMINS [Concomitant]
     Dosage: UNK
  9. CALCIUM [Concomitant]
     Dosage: UNK
  10. VITAMIN D [Concomitant]
     Dosage: UNK
  11. ASCORBIC ACID [Concomitant]
     Dosage: UNK

REACTIONS (4)
  - CONSTIPATION [None]
  - FEELING HOT [None]
  - POLLAKIURIA [None]
  - POLYDIPSIA [None]
